FAERS Safety Report 7807293-9 (Version None)
Quarter: 2011Q4

REPORT INFORMATION
  Report Type: 
  Country: None (occurrence: None)
  Receive Date: 20111011
  Receipt Date: 20110930
  Transmission Date: 20120403
  Serious: Yes (Death, Hospitalization)
  Sender: FDA-Public Use
  Company Number: JP-MERCK-1108USA03149

PATIENT
  Age: 61 Year
  Sex: Male

DRUGS (10)
  1. PEPCID RPD [Suspect]
     Indication: AORTIC DISSECTION
     Route: 048
     Dates: start: 20100206, end: 20100220
  2. GASCON [Suspect]
     Indication: ABDOMINAL DISTENSION
     Route: 048
     Dates: start: 20100208
  3. SUNRYTHM [Suspect]
     Indication: AORTIC DISSECTION
     Route: 048
     Dates: start: 20100205, end: 20100220
  4. AMPICILLIN SODIUM/SULBACTAM SODIUM [Suspect]
     Indication: PNEUMONIA
     Route: 042
     Dates: start: 20100209, end: 20100220
  5. PAZUCROSS [Suspect]
     Indication: URINARY TRACT INFECTION
     Route: 042
     Dates: start: 20100220, end: 20100220
  6. NORVASC [Suspect]
     Indication: AORTIC DISSECTION
     Route: 048
     Dates: start: 20100205, end: 20100220
  7. DOXAZOSIN MESYLATE [Suspect]
     Indication: AORTIC DISSECTION
     Route: 048
     Dates: start: 20100213
  8. SIGMART [Suspect]
     Indication: AORTIC DISSECTION
     Route: 048
     Dates: start: 20100207, end: 20100220
  9. VERAPAMIL HCL [Suspect]
     Indication: AORTIC DISSECTION
     Route: 048
     Dates: start: 20100210
  10. CARVEDILOL [Concomitant]
     Route: 065

REACTIONS (3)
  - STEVENS-JOHNSON SYNDROME [None]
  - SEPTIC SHOCK [None]
  - PSEUDOMONAS INFECTION [None]
